FAERS Safety Report 7888816-0 (Version None)
Quarter: 2011Q4

REPORT INFORMATION
  Report Type: 
  Country: None (occurrence: None)
  Receive Date: 20111103
  Receipt Date: 20111031
  Transmission Date: 20120403
  Serious: Yes (Other)
  Sender: FDA-Public Use
  Company Number: US-PFIZER INC-2011223163

PATIENT
  Sex: Female

DRUGS (5)
  1. PROCARDIA XL [Suspect]
     Indication: HYPERTENSION
     Dosage: UNK
     Dates: end: 20110101
  2. DYAZIDE [Suspect]
     Indication: HYPERTENSION
     Dosage: UNK
  3. SACCHARIN [Suspect]
     Dosage: UNK
  4. PROCARDIA XL [Suspect]
  5. NORVASC [Suspect]
     Dosage: UNK

REACTIONS (9)
  - ANAPHYLACTIC REACTION [None]
  - SWOLLEN TONGUE [None]
  - COUGH [None]
  - LIP SWELLING [None]
  - PALPITATIONS [None]
  - TREMOR [None]
  - FLUSHING [None]
  - URTICARIA [None]
  - DIARRHOEA [None]
